FAERS Safety Report 4634233-6 (Version None)
Quarter: 2005Q2

REPORT INFORMATION
  Report Type: 
  Country: None (occurrence: None)
  Receive Date: 20050413
  Receipt Date: 20050407
  Transmission Date: 20051028
  Serious: Yes (Other)
  Sender: FDA-Public Use
  Company Number: PHBS2005CA05024

PATIENT
  Sex: Female

DRUGS (1)
  1. ESTRADERM [Suspect]
     Dosage: 50 UG/DAY
     Route: 062

REACTIONS (1)
  - HODGKIN'S DISEASE [None]
